FAERS Safety Report 5467493-2 (Version None)
Quarter: 2007Q3

REPORT INFORMATION
  Report Type: 
  Country: None (occurrence: None)
  Receive Date: 20070925
  Receipt Date: 20070920
  Transmission Date: 20080115
  Serious: Yes (Other)
  Sender: FDA-Public Use
  Company Number: CH-GENENTECH-248097

PATIENT
  Age: 38 Year
  Sex: Female

DRUGS (1)
  1. RAPTIVA [Suspect]
     Indication: PSORIASIS
     Dosage: UNK, UNK
     Route: 058
     Dates: start: 20060701

REACTIONS (1)
  - BREAST CYST [None]
